FAERS Safety Report 12859565 (Version 2)
Quarter: 2016Q4

REPORT INFORMATION
  Report Type: Spontaneous
  Country: US (occurrence: US)
  Receive Date: 20161018
  Receipt Date: 20161209
  Transmission Date: 20170207
  Serious: Yes (Hospitalization)
  Sender: FDA-Public Use
  Company Number: US-RELYPSA-RLY2016002980

PATIENT
  Age: 60 Year
  Sex: Female

DRUGS (2)
  1. VELTASSA [Suspect]
     Active Substance: PATIROMER
     Indication: PRODUCT USED FOR UNKNOWN INDICATION
     Dosage: 8.4 G, UNKNOWN
     Route: 065
     Dates: end: 2016
  2. VELTASSA [Suspect]
     Active Substance: PATIROMER
     Dosage: 25.2 G, UNKNOWN
     Route: 065
     Dates: start: 20161101

REACTIONS (3)
  - Cardiac failure congestive [Recovered/Resolved]
  - Hypoxia [Recovered/Resolved]
  - Diarrhoea [Unknown]

NARRATIVE: CASE EVENT DATE: 20161005
